FAERS Safety Report 26123679 (Version 1)
Quarter: 2025Q4

REPORT INFORMATION
  Report Type: Spontaneous
  Country: EU (occurrence: EU)
  Receive Date: 20251205
  Receipt Date: 20251205
  Transmission Date: 20260118
  Serious: Yes (Hospitalization)
  Sender: TWI PHARMACEUTICALS
  Company Number: EU-TWI PHARMACEUTICAL, INC-20251101541

PATIENT
  Age: 19 Year
  Sex: Female

DRUGS (3)
  1. FLUOXETINE [Suspect]
     Active Substance: FLUOXETINE HYDROCHLORIDE
     Indication: Psychotic disorder
     Dosage: UNK
     Route: 065
  2. OLANZAPINE [Suspect]
     Active Substance: OLANZAPINE
     Indication: Psychotic disorder
     Dosage: 5 MG, BID
     Route: 065
  3. ARIPIPRAZOLE [Suspect]
     Active Substance: ARIPIPRAZOLE
     Indication: Psychotic disorder
     Dosage: 5 MG, DAILY
     Route: 065

REACTIONS (1)
  - Torticollis [Unknown]
